FAERS Safety Report 7897394-1 (Version None)
Quarter: 2011Q4

REPORT INFORMATION
  Report Type: 
  Country: None (occurrence: None)
  Receive Date: 20111107
  Receipt Date: 20111027
  Transmission Date: 20120403
  Serious: Yes (Other)
  Sender: FDA-Public Use
  Company Number: DE-JNJFOC-20111005117

PATIENT
  Age: 29 Year
  Sex: Female

DRUGS (3)
  1. AZATHIOPRINE [Concomitant]
     Indication: COLITIS ULCERATIVE
     Dates: start: 20111001
  2. INFLIXIMAB, RECOMBINANT [Suspect]
     Indication: COLITIS ULCERATIVE
     Dosage: 1ST INFUSION ^ABOUT 6 WEEKS AGO^
     Route: 042
     Dates: start: 20110901
  3. PREDNISONE [Concomitant]
     Indication: COLITIS ULCERATIVE
     Dates: start: 20111001

REACTIONS (2)
  - ABORTION SPONTANEOUS [None]
  - MATERNAL EXPOSURE DURING PREGNANCY [None]
